FAERS Safety Report 4759803-6 (Version None)
Quarter: 2005Q3

REPORT INFORMATION
  Report Type: 
  Country: None (occurrence: None)
  Receive Date: 20050831
  Receipt Date: 20050812
  Transmission Date: 20060218
  Serious: Yes (Hospitalization, Other)
  Sender: FDA-Public Use
  Company Number: USA0508105454

PATIENT
  Age: 66 Year
  Sex: Female

DRUGS (6)
  1. FORTEO [Suspect]
     Indication: OSTEOPOROSIS
     Dosage: 20 UG DAY
     Dates: start: 20050301
  2. MENOCYCLINE [Concomitant]
  3. TOPROL (METOPROLOL SUCCINATE) [Concomitant]
  4. ALTACE [Concomitant]
  5. PROTONIX [Concomitant]
  6. PREDNISONE TAB [Concomitant]

REACTIONS (3)
  - ABASIA [None]
  - FALL [None]
  - HIP FRACTURE [None]
